FAERS Safety Report 10283513 (Version 1)
Quarter: 2014Q3

REPORT INFORMATION
  Report Type: Spontaneous
  Country: GB (occurrence: GB)
  Receive Date: 20140708
  Receipt Date: 20140708
  Transmission Date: 20150326
  Serious: No
  Sender: FDA-Public Use
  Company Number: GB-JNJFOC-20140617913

PATIENT
  Sex: Female

DRUGS (3)
  1. DURAGESIC [Suspect]
     Active Substance: FENTANYL
     Indication: CANCER PAIN
     Route: 062
  2. DURAGESIC [Suspect]
     Active Substance: FENTANYL
     Indication: CANCER PAIN
     Route: 062
  3. DURAGESIC [Suspect]
     Active Substance: FENTANYL
     Indication: CANCER PAIN
     Route: 062

REACTIONS (6)
  - Wrong technique in drug usage process [Unknown]
  - Incorrect drug administration duration [Unknown]
  - Product quality issue [Unknown]
  - Hot flush [Unknown]
  - Breakthrough pain [Unknown]
  - Product adhesion issue [Unknown]
